FAERS Safety Report 25428083 (Version 2)
Quarter: 2025Q2

REPORT INFORMATION
  Report Type: Spontaneous
  Country: IN (occurrence: IN)
  Receive Date: 20250612
  Receipt Date: 20250613
  Transmission Date: 20250716
  Serious: Yes (Other)
  Sender: SANDOZ
  Company Number: IN-002147023-NVSC2025IN091561

PATIENT
  Sex: Female

DRUGS (2)
  1. MYFORTIC [Suspect]
     Active Substance: MYCOPHENOLATE SODIUM
     Indication: Renal transplant
     Route: 048
  2. TACROLIMUS [Suspect]
     Active Substance: TACROLIMUS
     Indication: Renal transplant
     Dosage: 2 MG, BID
     Route: 048

REACTIONS (12)
  - Chromaturia [Unknown]
  - Rales [Unknown]
  - Dysuria [Unknown]
  - Acute kidney injury [Unknown]
  - Klebsiella sepsis [Unknown]
  - Pyrexia [Unknown]
  - Cough [Unknown]
  - Hypoalbuminaemia [Unknown]
  - Ill-defined disorder [Unknown]
  - Electrolyte imbalance [Unknown]
  - Oliguria [Unknown]
  - Off label use [Unknown]
